FAERS Safety Report 7687595-X (Version None)
Quarter: 2011Q3

REPORT INFORMATION
  Report Type: 
  Country: None (occurrence: None)
  Receive Date: 20110817
  Receipt Date: 20110808
  Transmission Date: 20111222
  Serious: Yes (Other)
  Sender: FDA-Public Use
  Company Number: US-CEPHALON-US023667

PATIENT
  Sex: Female
  Weight: 123 kg

DRUGS (10)
  1. CELEBREX [Concomitant]
     Indication: ARTHRITIS
     Route: 048
     Dates: end: 20080401
  2. OXYCODONE HCL [Concomitant]
     Indication: PAIN
     Dosage: UNKNOWN
     Route: 048
     Dates: start: 20060101
  3. INDERAL [Concomitant]
     Indication: ARRHYTHMIA
     Route: 048
     Dates: start: 20040101
  4. TRAMADOL HCL [Concomitant]
     Indication: PAIN
     Dosage: QID PRN
     Route: 048
     Dates: start: 20040101
  5. PROVIGIL [Suspect]
     Indication: FIBROMYALGIA
     Route: 048
     Dates: start: 20070401, end: 20080401
  6. PROVIGIL [Suspect]
     Indication: CHRONIC FATIGUE SYNDROME
  7. SYNTHROID [Concomitant]
     Indication: THYROID DISORDER
     Route: 048
  8. CYMBALTA [Concomitant]
     Indication: PAIN
     Route: 048
     Dates: start: 20040101, end: 20080101
  9. NEURONTIN [Concomitant]
     Indication: FIBROMYALGIA
     Dosage: TID PRN
     Route: 048
     Dates: start: 20040101
  10. XANAX [Concomitant]
     Indication: INSOMNIA
     Route: 048
     Dates: start: 20040101

REACTIONS (17)
  - EYE SWELLING [None]
  - RASH PRURITIC [None]
  - HALLUCINATIONS, MIXED [None]
  - PAIN [None]
  - DIARRHOEA [None]
  - SKIN NECROSIS [None]
  - MANIA [None]
  - RASH ERYTHEMATOUS [None]
  - PSYCHOTIC DISORDER [None]
  - SKIN EXFOLIATION [None]
  - PROCTALGIA [None]
  - FAECAL INCONTINENCE [None]
  - HYPERSOMNIA [None]
  - SKIN LESION [None]
  - PHOTOPSIA [None]
  - LIP SWELLING [None]
  - BACK PAIN [None]
